FAERS Safety Report 15684511 (Version 1)
Quarter: 2018Q4

REPORT INFORMATION
  Report Type: Spontaneous
  Country: US (occurrence: US)
  Receive Date: 20181121
  Receipt Date: 20181121
  Transmission Date: 20190205
  Serious: Yes (Hospitalization, Other)
  Sender: FDA-Public Use
  Company Number: None

PATIENT
  Age: 58 Year
  Sex: Female
  Weight: 68 kg

DRUGS (1)
  1. CANAGLIFLOZIN 300MG [Suspect]
     Active Substance: CANAGLIFLOZIN
     Indication: TYPE 2 DIABETES MELLITUS
     Route: 048

REACTIONS (6)
  - Hyperhidrosis [None]
  - Vomiting [None]
  - Diabetic ketoacidosis [None]
  - Dyspnoea [None]
  - Nausea [None]
  - Pain [None]

NARRATIVE: CASE EVENT DATE: 20180611
